FAERS Safety Report 9516146 (Version 1)
Quarter: 2013Q1

REPORT INFORMATION
  Report Type: Spontaneous
  Country: US (occurrence: None)
  Receive Date: 20130305
  Receipt Date: 20130305
  Transmission Date: 20140127
  Serious: Yes (Other)
  Sender: FDA-Public Use
  Company Number: 163-21880-12120179

PATIENT
  Age: 64 Year
  Sex: Male
  Weight: 72.58 kg

DRUGS (4)
  1. REVLIMID (LENALIDOMIDE) (25 MILLIGRAM, CAPSULES) [Suspect]
     Indication: PLASMA CELL MYELOMA
     Dosage: 25 MG, 1 IN 1 D, PO
     Route: 048
     Dates: start: 20091101
  2. COUMADIN (WARFARIN SODIUM) [Concomitant]
  3. HEPARIN SODIUM (HEPARIN SODIUM) [Concomitant]
  4. IBUPROFEN (IBUPROFEN) [Concomitant]

REACTIONS (1)
  - Thrombosis [None]
